FAERS Safety Report 6585175-0 (Version None)
Quarter: 2010Q1

REPORT INFORMATION
  Report Type: 
  Country: None (occurrence: None)
  Receive Date: 20100217
  Receipt Date: 20100210
  Transmission Date: 20100710
  Serious: No
  Sender: FDA-Public Use
  Company Number: US-ALLERGAN-1001068US

PATIENT
  Age: 90 Year
  Sex: Male

DRUGS (1)
  1. REFRESH LACRI-LUBE [Suspect]
     Indication: EYE PAIN
     Route: 047

REACTIONS (2)
  - EYE PAIN [None]
  - SUPERFICIAL INJURY OF EYE [None]
